FAERS Safety Report 9629332 (Version 1)
Quarter: 2013Q4

REPORT INFORMATION
  Report Type: Spontaneous
  Country: US (occurrence: US)
  Receive Date: 20131017
  Receipt Date: 20131017
  Transmission Date: 20140711
  Serious: No
  Sender: FDA-Public Use
  Company Number: US-ASTRAZENECA-2013SE73405

PATIENT
  Age: 70 Year
  Sex: Female
  Weight: 90.7 kg

DRUGS (6)
  1. CRESTOR [Suspect]
     Indication: BLOOD CHOLESTEROL INCREASED
     Route: 048
     Dates: start: 20130930
  2. CRESTOR [Suspect]
     Indication: BLOOD CHOLESTEROL INCREASED
     Dosage: EARLY DINNER
     Route: 048
     Dates: start: 20131001
  3. DITILAZAM [Concomitant]
     Indication: ATRIAL FIBRILLATION
  4. COUMADIN [Concomitant]
     Dosage: 5 MG 4 TIMES A WEEK
  5. NORMADYNE [Concomitant]
     Indication: BLOOD PRESSURE
  6. DIOVAN [Concomitant]
     Indication: BLOOD PRESSURE

REACTIONS (2)
  - Fatigue [Unknown]
  - Therapeutic response unexpected [Unknown]
